FAERS Safety Report 6769265-5 (Version None)
Quarter: 2010Q2

REPORT INFORMATION
  Report Type: 
  Country: None (occurrence: None)
  Receive Date: 20100615
  Receipt Date: 20100608
  Transmission Date: 20101027
  Serious: Yes (Life-Threatening, Hospitalization)
  Sender: FDA-Public Use
  Company Number: JP-TYCO HEALTHCARE/MALLINCKRODT-T201001257

PATIENT

DRUGS (10)
  1. OPTIRAY 350 [Suspect]
     Indication: COMPUTERISED TOMOGRAM
     Dosage: 100 ML, SINGLE
     Route: 042
     Dates: start: 20100519, end: 20100519
  2. ASPIRIN [Concomitant]
     Indication: ARTERIOSCLEROSIS OBLITERANS
     Dosage: 1 TAB QD
     Route: 048
     Dates: start: 20091209
  3. CANDESARTAN CILEXETIL [Concomitant]
     Indication: HYPERTENSION
     Dosage: 1/2 TAB, QD
     Route: 048
     Dates: start: 20091209
  4. FAMOTIDINE [Concomitant]
     Indication: GASTRITIS
     Dosage: 1 TAB, QD
     Route: 048
     Dates: start: 20100129
  5. FUROSEMIDE [Concomitant]
     Indication: HYPERTENSION
     Dosage: 1/2 TAB, QD
     Route: 048
     Dates: start: 20091209
  6. WARFARIN POTASSIUM [Concomitant]
     Indication: ARTERIOSCLEROSIS OBLITERANS
     Dosage: UNK, QD
     Route: 048
     Dates: start: 20100129
  7. BERAPROST SODIUM [Concomitant]
     Indication: ARTERIOSCLEROSIS OBLITERANS
     Dosage: 2 TABS, TID
     Route: 048
     Dates: start: 20100129
  8. AMIODARONE HYDROCHLORIDE [Concomitant]
     Indication: ARRHYTHMIA
     Dosage: 1 TAB, QD
     Route: 048
     Dates: start: 20100205
  9. CARVEDILOL [Concomitant]
     Indication: ARTERIOSCLEROSIS OBLITERANS
     Dosage: 2 TAB, QD
     Route: 048
     Dates: start: 20100129
  10. AMBROXOL HYDROCHLORIDE [Concomitant]
     Route: 048

REACTIONS (1)
  - ANAPHYLACTIC SHOCK [None]
